FAERS Safety Report 20444785 (Version 1)
Quarter: 2022Q1

REPORT INFORMATION
  Report Type: Spontaneous
  Country: JP (occurrence: JP)
  Receive Date: 20220208
  Receipt Date: 20220208
  Transmission Date: 20220423
  Serious: Yes (Life-Threatening, Hospitalization, Other)
  Sender: FDA-Public Use
  Company Number: JP-MSD-M2021-20057

PATIENT
  Age: 49 Year
  Sex: Male

DRUGS (4)
  1. KEYTRUDA [Suspect]
     Active Substance: PEMBROLIZUMAB
     Indication: Nasal sinus cancer
     Dosage: 200 MILLIGRAM, Q3W
     Route: 041
     Dates: start: 201910, end: 20200622
  2. CETUXIMAB [Suspect]
     Active Substance: CETUXIMAB
     Indication: Nasal sinus cancer
     Dosage: UNK
     Route: 042
     Dates: start: 20200727, end: 20200803
  3. CISPLATIN [Concomitant]
     Active Substance: CISPLATIN
     Dosage: 60 MILLIGRAM
     Route: 065
  4. FLUOROURACIL [Concomitant]
     Active Substance: FLUOROURACIL
     Dosage: 600 MILLIGRAM
     Route: 065

REACTIONS (3)
  - Malignant neoplasm progression [Unknown]
  - Interstitial lung disease [Recovered/Resolved]
  - Drug eruption [Recovered/Resolved]

NARRATIVE: CASE EVENT DATE: 20200808
